FAERS Safety Report 8914720 (Version 2)
Quarter: 2012Q4

REPORT INFORMATION
  Report Type: 
  Country: DE (occurrence: DE)
  Receive Date: 20121119
  Receipt Date: 20121126
  Transmission Date: 20130627
  Serious: Yes (Death, Life-Threatening)
  Sender: FDA-Public Use
  Company Number: DE-ASTRAZENECA-2012SE86936

PATIENT

DRUGS (9)
  1. BRILIQUE [Suspect]
     Indication: ACUTE MYOCARDIAL INFARCTION
     Route: 050
     Dates: start: 20121102, end: 20121108
  2. BRILIQUE [Suspect]
     Indication: CORONARY ARTERY DISEASE
     Route: 050
     Dates: start: 20121102, end: 20121108
  3. BRILIQUE [Suspect]
     Indication: CORONARY ARTERY BYPASS
     Route: 050
     Dates: start: 20121102, end: 20121108
  4. BRILIQUE [Suspect]
     Indication: ACUTE MYOCARDIAL INFARCTION
     Route: 048
  5. BRILIQUE [Suspect]
     Indication: CORONARY ARTERY DISEASE
     Route: 048
  6. BRILIQUE [Suspect]
     Indication: CORONARY ARTERY BYPASS
     Route: 048
  7. ASS [Concomitant]
     Indication: ACUTE MYOCARDIAL INFARCTION
     Route: 050
     Dates: start: 20121102, end: 20121108
  8. ASS [Concomitant]
     Indication: CORONARY ARTERY DISEASE
     Route: 050
     Dates: start: 20121102, end: 20121108
  9. ASS [Concomitant]
     Indication: CORONARY ARTERY BYPASS
     Route: 050
     Dates: start: 20121102, end: 20121108

REACTIONS (1)
  - Thrombosis in device [Fatal]
